FAERS Safety Report 6914857-3 (Version None)
Quarter: 2010Q3

REPORT INFORMATION
  Report Type: 
  Country: None (occurrence: None)
  Receive Date: 20100809
  Receipt Date: 20100802
  Transmission Date: 20110219
  Serious: Yes (Hospitalization)
  Sender: FDA-Public Use
  Company Number: US-B.I. PHARMACEUTICALS,INC./RIDGEFIELD-2010-BP-06322BP

PATIENT
  Sex: Male
  Weight: 85.73 kg

DRUGS (1)
  1. MIRAPEX [Suspect]
     Indication: RESTLESS LEGS SYNDROME
     Dosage: 0.5 MG
     Dates: start: 20030416, end: 20091204

REACTIONS (14)
  - AMNESIA [None]
  - BRUXISM [None]
  - COMPULSIVE SHOPPING [None]
  - DEPRESSION [None]
  - EMOTIONAL DISTRESS [None]
  - HYPERPHAGIA [None]
  - HYPERSEXUALITY [None]
  - HYPERTENSION [None]
  - IMPULSE-CONTROL DISORDER [None]
  - OBSESSIVE-COMPULSIVE DISORDER [None]
  - PAIN [None]
  - PATHOLOGICAL GAMBLING [None]
  - STRESS [None]
  - SUICIDAL IDEATION [None]
